FAERS Safety Report 18320708 (Version 1)
Quarter: 2020Q3

REPORT INFORMATION
  Report Type: Spontaneous
  Country: SE (occurrence: SE)
  Receive Date: 20200928
  Receipt Date: 20200928
  Transmission Date: 20201103
  Serious: Yes (Life-Threatening, Hospitalization, Other)
  Sender: FDA-Public Use
  Company Number: SE-PFIZER INC-2020372161

PATIENT
  Age: 70 Year
  Sex: Male

DRUGS (11)
  1. TRENTAL [Suspect]
     Active Substance: PENTOXIFYLLINE
     Indication: OSTEONECROSIS OF JAW
     Dosage: 800 MG, DAILY
     Route: 048
     Dates: start: 20190715, end: 20200423
  2. PROPAVAN [Concomitant]
     Active Substance: PROPIOMAZINE
     Dosage: 25 MG, AS NEEDED
  3. ATORVASTATIN [Concomitant]
     Active Substance: ATORVASTATIN
     Dosage: 40 MG, DAILY
  4. BONEFOS [Suspect]
     Active Substance: CLODRONATE DISODIUM
     Indication: OSTEONECROSIS OF JAW
     Dosage: UNK (2X1, FIVE DAYS A WEEK)
     Route: 048
     Dates: start: 20190715, end: 20200423
  5. METOPROLOL. [Concomitant]
     Active Substance: METOPROLOL
     Dosage: 100 MG, DAILY
  6. E?VIMIN [TOCOPHERYL ACETATE] [Suspect]
     Active Substance: .ALPHA.-TOCOPHEROL ACETATE
     Indication: OSTEONECROSIS OF JAW
     Dosage: 400 MG, DAILY
     Route: 048
     Dates: start: 20190715, end: 20200423
  7. AMLODIPINE [Concomitant]
     Active Substance: AMLODIPINE BESYLATE
     Dosage: 10 MG, DAILY
  8. TROMBYL [Concomitant]
     Active Substance: ASPIRIN
     Dosage: 75 MG, DAILY
  9. CELECOXIB. [Suspect]
     Active Substance: CELECOXIB
     Indication: OSTEONECROSIS OF JAW
     Dosage: 200 MG, DAILY
     Route: 048
     Dates: start: 20190715, end: 20200423
  10. ESOMEPRAZOLE. [Concomitant]
     Active Substance: ESOMEPRAZOLE MAGNESIUM
     Dosage: 20 MG, DAILY
  11. LASIX [Concomitant]
     Active Substance: FUROSEMIDE
     Dosage: 30 MG, DAILY

REACTIONS (4)
  - Nephropathy [Recovered/Resolved with Sequelae]
  - Product use in unapproved indication [Unknown]
  - Renal failure [Recovered/Resolved with Sequelae]
  - Off label use [Unknown]

NARRATIVE: CASE EVENT DATE: 20190715
